FAERS Safety Report 4461169-6 (Version None)
Quarter: 2004Q3

REPORT INFORMATION
  Report Type: 
  Country: None (occurrence: None)
  Receive Date: 20040920
  Receipt Date: 20040920
  Transmission Date: 20050211
  Serious: No
  Sender: FDA-Public Use
  Company Number: None

PATIENT
  Age: 63 Year
  Sex: Female

DRUGS (10)
  1. SEPTOCAINE [Suspect]
     Indication: TOOTH EXTRACTION
     Dosage: 100MG INFILTRATION
     Dates: start: 20040825, end: 20040825
  2. ZETIA [Concomitant]
  3. TRICOR [Concomitant]
  4. SYNTHROID [Concomitant]
  5. LIPITOR [Concomitant]
  6. CELEBREX [Concomitant]
  7. PAXIL [Concomitant]
  8. ASPIRIN [Concomitant]
  9. PRILOSEC [Concomitant]
  10. PILL FOR NIGHT SWEATS [Concomitant]

REACTIONS (1)
  - CONVULSION [None]
